FAERS Safety Report 5334478-6 (Version None)
Quarter: 2007Q2

REPORT INFORMATION
  Report Type: 
  Country: None (occurrence: None)
  Receive Date: 20070525
  Receipt Date: 20070515
  Transmission Date: 20071010
  Serious: Yes (Hospitalization, Other)
  Sender: FDA-Public Use
  Company Number: GB-NOVOPROD-263723

PATIENT
  Age: 59 Year
  Sex: Female
  Weight: 118.9 kg

DRUGS (10)
  1. LEVEMIR [Suspect]
     Indication: INSULIN-REQUIRING TYPE II DIABETES MELLITUS
     Dosage: 40 IU, QD
     Dates: start: 20070219, end: 20070219
  2. BECOTIDE [Concomitant]
  3. LANTUS [Concomitant]
     Dosage: 52 IU, QD
  4. METFORMIN HCL [Concomitant]
     Dosage: 500 MG, QD
     Route: 048
  5. NOVORAPID [Concomitant]
  6. RAMIPRIL [Concomitant]
     Dosage: 2.5 MG, BID
     Route: 048
  7. SALBUTAMOL [Concomitant]
     Route: 055
  8. SIMVASTATIN [Concomitant]
     Dosage: 20 MG, QD
     Route: 048
  9. LEVOTHYROXINE SODIUM [Concomitant]
     Dosage: 125 UG, QD
     Route: 048
  10. VOLTAROL                           /00372302/ [Concomitant]
     Dosage: 50 UNK, QD
     Route: 048

REACTIONS (3)
  - CHEST PAIN [None]
  - DYSPNOEA [None]
  - HYPOAESTHESIA [None]
